FAERS Safety Report 16955234 (Version 1)
Quarter: 2019Q4

REPORT INFORMATION
  Report Type: Spontaneous
  Country: DE (occurrence: DE)
  Receive Date: 20191024
  Receipt Date: 20191024
  Transmission Date: 20200122
  Serious: Yes (Other)
  Sender: FDA-Public Use
  Company Number: DE-009507513-1910DEU011275

PATIENT
  Sex: Female

DRUGS (1)
  1. IMPLANON NXT [Suspect]
     Active Substance: ETONOGESTREL
     Indication: CONTRACEPTION
     Dosage: UNK
     Route: 059

REACTIONS (4)
  - Cardiovascular disorder [Unknown]
  - Product intolerance [Unknown]
  - Nausea [Unknown]
  - Syncope [Unknown]

NARRATIVE: CASE EVENT DATE: 2017
